FAERS Safety Report 10191812 (Version 1)
Quarter: 2014Q2

REPORT INFORMATION
  Report Type: Spontaneous
  Country: US (occurrence: US)
  Receive Date: 20140523
  Receipt Date: 20140523
  Transmission Date: 20141212
  Serious: Yes (Other)
  Sender: FDA-Public Use
  Company Number: US-RB-066036-14

PATIENT
  Age: 46 Year
  Sex: Female

DRUGS (3)
  1. MUCINEX DM MAXIMUM STRENGTH [Suspect]
     Indication: RHINORRHOEA
     Dosage: TOOK 1 TABLET ON 12-MAY-2014 (ONE TIME ONLY)
     Route: 048
     Dates: start: 20140512
  2. MUCINEX DM MAXIMUM STRENGTH [Suspect]
     Indication: RESPIRATORY TRACT CONGESTION
     Dosage: TOOK 1 TABLET ON 12-MAY-2014 (ONE TIME ONLY)
     Route: 048
     Dates: start: 20140512
  3. SYNTHROID [Concomitant]
     Indication: PRODUCT USED FOR UNKNOWN INDICATION

REACTIONS (4)
  - Hypertension [Recovered/Resolved]
  - Palpitations [Recovered/Resolved]
  - Dehydration [Recovered/Resolved]
  - Diarrhoea [Recovered/Resolved]
